FAERS Safety Report 24612710 (Version 1)
Quarter: 2024Q4

REPORT INFORMATION
  Report Type: Spontaneous
  Country: CN (occurrence: CN)
  Receive Date: 20241113
  Receipt Date: 20241113
  Transmission Date: 20250114
  Serious: Yes (Other)
  Sender: NOVARTIS
  Company Number: CN-002147023-NVSC2024CN217483

PATIENT
  Age: 77 Year
  Sex: Male
  Weight: 75.7 kg

DRUGS (4)
  1. SACUBITRIL\VALSARTAN [Suspect]
     Active Substance: SACUBITRIL\VALSARTAN
     Indication: Hypertension
     Dosage: 100 MG, BID
     Route: 048
     Dates: start: 20241005, end: 20241008
  2. SACUBITRIL\VALSARTAN [Suspect]
     Active Substance: SACUBITRIL\VALSARTAN
     Dosage: 50 MG, BID
     Route: 048
     Dates: start: 20241008
  3. NESIRITIDE [Suspect]
     Active Substance: NESIRITIDE
     Indication: Cardiac failure
     Dosage: 0.5 MG, BID (4 ML/H) (PUMP INJECTION)
     Route: 050
     Dates: start: 20241005, end: 20241006
  4. NESIRITIDE [Suspect]
     Active Substance: NESIRITIDE
     Dosage: 2ML/H
     Route: 065
     Dates: start: 20241006, end: 20241008

REACTIONS (2)
  - Hypotension [Recovering/Resolving]
  - Off label use [Unknown]

NARRATIVE: CASE EVENT DATE: 20241005
